FAERS Safety Report 6039078-0 (Version None)
Quarter: 2009Q1

REPORT INFORMATION
  Report Type: 
  Country: None (occurrence: None)
  Receive Date: 20090115
  Receipt Date: 20090108
  Transmission Date: 20090719
  Serious: Yes (Other)
  Sender: FDA-Public Use
  Company Number: US-PFIZER INC-2009153705

PATIENT
  Sex: Female
  Weight: 70.306 kg

DRUGS (9)
  1. LYRICA [Suspect]
     Indication: CONVULSION
     Dosage: 100 MG, 3X/DAY
     Dates: start: 20070601
  2. LYRICA [Suspect]
     Indication: HERPES ZOSTER
  3. LYRICA [Suspect]
     Indication: NEURALGIA
  4. LEXAPRO [Concomitant]
     Dosage: UNK
  5. DOXEPIN [Concomitant]
     Dosage: UNK
  6. KLONOPIN [Concomitant]
     Dosage: UNK
  7. ROBAXIN [Concomitant]
     Dosage: UNK
  8. ZANAFLEX [Concomitant]
     Dosage: UNK
  9. ZANTAC [Concomitant]
     Dosage: UNK

REACTIONS (4)
  - CARPAL TUNNEL DECOMPRESSION [None]
  - JOINT ARTHROPLASTY [None]
  - OEDEMA [None]
  - WEIGHT INCREASED [None]
